FAERS Safety Report 14297653 (Version 1)
Quarter: 2017Q4

REPORT INFORMATION
  Report Type: Spontaneous
  Country: CA (occurrence: CA)
  Receive Date: 20171218
  Receipt Date: 20171218
  Transmission Date: 20180321
  Serious: Yes (Death)
  Sender: FDA-Public Use
  Company Number: CA-MALLINCKRODT-T201705176

PATIENT
  Age: 90 Year
  Sex: Female

DRUGS (3)
  1. HYDROMORPHONE HYDROCHLORIDE. [Suspect]
     Active Substance: HYDROMORPHONE HYDROCHLORIDE
     Dosage: 2 MG, IN 4 HOUR
     Route: 048
  2. MORPHINE [Suspect]
     Active Substance: MORPHINE
     Indication: PAIN MANAGEMENT
     Dosage: 30 MG, IN 1 DAY
     Route: 048
  3. HYDROMORPHONE HYDROCHLORIDE. [Suspect]
     Active Substance: HYDROMORPHONE HYDROCHLORIDE
     Indication: PAIN MANAGEMENT
     Dosage: 2 MG, IN 6 HOUR
     Route: 048

REACTIONS (5)
  - Unresponsive to stimuli [Fatal]
  - Toxicity to various agents [Fatal]
  - Drug prescribing error [Fatal]
  - Respiratory rate decreased [Fatal]
  - Accidental overdose [Fatal]
